FAERS Safety Report 7775844-9 (Version None)
Quarter: 2011Q3

REPORT INFORMATION
  Report Type: 
  Country: None (occurrence: None)
  Receive Date: 20110923
  Receipt Date: 20110920
  Transmission Date: 20111222
  Serious: Yes (Other)
  Sender: FDA-Public Use
  Company Number: US-PFIZER INC-2008011927

PATIENT
  Sex: Female
  Weight: 87 kg

DRUGS (4)
  1. DEPO-PROVERA [Suspect]
     Indication: CONTRACEPTION
     Dosage: UNK, MONTHLY
     Dates: start: 20030101, end: 20070101
  2. LUPRON [Suspect]
     Indication: CONTRACEPTION
  3. LUPRON [Suspect]
     Indication: ENDOMETRIOSIS
     Dosage: UNK, MONTHLY
  4. DEPO-PROVERA [Suspect]
     Indication: ENDOMETRIOSIS

REACTIONS (14)
  - ARTHRALGIA [None]
  - PAIN IN EXTREMITY [None]
  - INTRA-UTERINE DEATH [None]
  - GENERAL PHYSICAL HEALTH DETERIORATION [None]
  - EMOTIONAL DISTRESS [None]
  - DRUG INEFFECTIVE [None]
  - RED BLOOD CELL COUNT DECREASED [None]
  - HYPOAESTHESIA [None]
  - FATIGUE [None]
  - UTERINE HAEMORRHAGE [None]
  - ASTHENIA [None]
  - ECTOPIC PREGNANCY [None]
  - DISABILITY [None]
  - MALAISE [None]
